FAERS Safety Report 10045588 (Version 2)
Quarter: 2014Q2

REPORT INFORMATION
  Report Type: Report from Study
  Country: US (occurrence: US)
  Receive Date: 20140328
  Receipt Date: 20140404
  Transmission Date: 20141212
  Serious: Yes (Other)
  Sender: FDA-Public Use
  Company Number: US-BAXTER-2014BAX015161

PATIENT
  Sex: Female
  Weight: 131.82 kg

DRUGS (9)
  1. GAMMAGARD LIQUID [Suspect]
     Indication: IMMUNODEFICIENCY COMMON VARIABLE
     Route: 042
     Dates: start: 201203
  2. GAMMAGARD LIQUID [Suspect]
     Route: 042
     Dates: start: 201401, end: 201401
  3. GAMMAGARD LIQUID [Suspect]
     Route: 042
     Dates: start: 201403, end: 201403
  4. SPIRONOLACTONE [Concomitant]
     Indication: PRODUCT USED FOR UNKNOWN INDICATION
     Route: 065
  5. DULERA [Concomitant]
     Indication: ASTHMA
     Route: 065
  6. FLONASE [Concomitant]
     Indication: ASTHMA
     Route: 065
  7. VITAMIN D [Concomitant]
     Indication: PRODUCT USED FOR UNKNOWN INDICATION
     Route: 065
  8. POTASSIUM [Concomitant]
     Indication: PRODUCT USED FOR UNKNOWN INDICATION
     Route: 065
  9. VERAPAMIL [Concomitant]
     Indication: BLOOD PRESSURE MANAGEMENT
     Route: 065

REACTIONS (8)
  - Gitelman^s syndrome [Not Recovered/Not Resolved]
  - Phlebitis [Recovered/Resolved]
  - Cellulitis [Recovered/Resolved]
  - Bronchitis [Recovering/Resolving]
  - Atypical pneumonia [Recovering/Resolving]
  - Migraine [Recovered/Resolved]
  - Pain [Recovering/Resolving]
  - Malaise [Not Recovered/Not Resolved]
